FAERS Safety Report 18393371 (Version 3)
Quarter: 2021Q2

REPORT INFORMATION
  Report Type: Report from Study
  Country: CA (occurrence: CA)
  Receive Date: 20201016
  Receipt Date: 20210414
  Transmission Date: 20210717
  Serious: Yes (Other)
  Sender: FDA-Public Use
  Company Number: CA-JNJFOC-20201020023

PATIENT
  Age: 17 Year
  Sex: Male
  Weight: 51.7 kg

DRUGS (2)
  1. REMICADE [Suspect]
     Active Substance: INFLIXIMAB
     Indication: COLITIS ULCERATIVE
     Dosage: 5MG/KG
     Route: 042
     Dates: start: 20200702
  2. REMICADE [Suspect]
     Active Substance: INFLIXIMAB
     Dosage: 5MG/KG
     Route: 042
     Dates: start: 20200702

REACTIONS (1)
  - Haematochezia [Recovered/Resolved]

NARRATIVE: CASE EVENT DATE: 20201013
